FAERS Safety Report 5515636-4 (Version None)
Quarter: 2007Q4

REPORT INFORMATION
  Report Type: 
  Country: None (occurrence: None)
  Receive Date: 20071113
  Receipt Date: 20070717
  Transmission Date: 20080405
  Serious: No
  Sender: FDA-Public Use
  Company Number: A0664598A

PATIENT
  Age: 69 Year
  Sex: Male

DRUGS (6)
  1. COREG [Suspect]
     Dosage: 25MG TWICE PER DAY
     Route: 048
     Dates: start: 20030101
  2. LIPITOR [Concomitant]
  3. ALBUTEROL [Concomitant]
  4. SPIRIVA [Concomitant]
  5. FORADIL [Concomitant]
  6. BEXTRA [Concomitant]

REACTIONS (2)
  - HEADACHE [None]
  - HYPOTENSION [None]
